FAERS Safety Report 9693153 (Version 1)
Quarter: 2013Q4

REPORT INFORMATION
  Report Type: Spontaneous
  Country: TR (occurrence: None)
  Receive Date: 20131114
  Receipt Date: 20131114
  Transmission Date: 20140711
  Serious: Yes (Hospitalization)
  Sender: FDA-Public Use
  Company Number: A1049349A

PATIENT
  Age: 50 Year
  Sex: Female

DRUGS (8)
  1. IRINOTECAN [Suspect]
     Indication: ADENOCARCINOMA OF COLON
     Dosage: 125 MG/M2 ; UNK / UNKNOWN
  2. CALCIUM FOLINATE [Suspect]
     Indication: ADENOCARCINOMA OF COLON
     Dosage: 20 MG/M2 / UNK / UNKNOWN
  3. ONDANSETRON HYDROCHLORIDE [Suspect]
     Indication: PROPHYLAXIS OF NAUSEA AND VOMITING
     Dosage: 8 MG/DAY / UNK / INTRAVENOUS
     Route: 042
  4. DEXAMETHASONE [Suspect]
     Indication: PROPHYLAXIS OF NAUSEA AND VOMITING
     Dosage: 16 MAG/DAY / UNK / INTRAVENOUS
     Route: 042
  5. PIROXICAM [Suspect]
     Indication: PAIN
     Dosage: 20 MG/DAY / UNK / ORAL
     Route: 048
  6. OMEPRAZOLE [Suspect]
     Indication: PROPHYLAXIS AGAINST GASTROINTESTINAL ULCER
     Dosage: 40 MG/DAY / UNK / ORAL
     Route: 048
  7. FLUOROURACIL [Suspect]
     Indication: ADENOCARCINOMA OF COLON
     Dosage: 500 MG/M2 / UNK / UNKNOWN
  8. CODEINE [Suspect]
     Indication: PAIN
     Dosage: 60 MG/DAY / UNK / ORAL
     Route: 048

REACTIONS (1)
  - Pancreatitis acute [None]
